FAERS Safety Report 6723236-3 (Version None)
Quarter: 2010Q2

REPORT INFORMATION
  Report Type: 
  Country: None (occurrence: None)
  Receive Date: 20100513
  Receipt Date: 20100505
  Transmission Date: 20101027
  Serious: Yes (Hospitalization, Other)
  Sender: FDA-Public Use
  Company Number: ES-ABBOTT-09P-144-0605652-01

PATIENT
  Sex: Female
  Weight: 58 kg

DRUGS (8)
  1. HUMIRA [Suspect]
     Indication: RHEUMATOID ARTHRITIS
     Route: 058
     Dates: start: 20041027
  2. HUMIRA [Concomitant]
     Indication: RHEUMATOID ARTHRITIS
     Route: 058
     Dates: start: 20040310
  3. ARAVA [Concomitant]
     Indication: DRUG USE FOR UNKNOWN INDICATION
  4. COLEMIN [Concomitant]
     Indication: DRUG USE FOR UNKNOWN INDICATION
  5. BUSCAPINE [Concomitant]
     Indication: DRUG USE FOR UNKNOWN INDICATION
  6. DACORTIN [Concomitant]
     Indication: DRUG USE FOR UNKNOWN INDICATION
  7. NOLOTIL [Concomitant]
     Indication: MYALGIA
     Dates: start: 20090601
  8. PARACETAMOL [Concomitant]
     Indication: MYALGIA
     Dates: start: 20090601

REACTIONS (5)
  - DUODENAL FISTULA [None]
  - DUODENAL ULCER [None]
  - INTESTINAL PERFORATION [None]
  - RETROPERITONEAL HAEMORRHAGE [None]
  - SUBCLAVIAN VEIN THROMBOSIS [None]
